FAERS Safety Report 15263314 (Version 3)
Quarter: 2018Q3

REPORT INFORMATION
  Report Type: Spontaneous
  Country: DE (occurrence: DE)
  Receive Date: 20180810
  Receipt Date: 20180904
  Transmission Date: 20181010
  Serious: Yes (Hospitalization, Other)
  Sender: FDA-Public Use
  Company Number: DE-MACLEODS PHARMACEUTICALS US LTD-MAC2018016307

PATIENT

DRUGS (15)
  1. ATROPINE. [Suspect]
     Active Substance: ATROPINE
     Indication: BLOOD PRESSURE DECREASED
     Dosage: UNK
     Route: 065
  2. TAMSULOSIN [Suspect]
     Active Substance: TAMSULOSIN
     Indication: BENIGN PROSTATIC HYPERPLASIA
     Dosage: UNK
     Route: 065
  3. TAMSULOSIN [Suspect]
     Active Substance: TAMSULOSIN
     Dosage: UNK
     Route: 065
  4. REMIFENTANIL [Suspect]
     Active Substance: REMIFENTANIL
     Dosage: 0.35 MICROGRAM/KILOGRAM, 1 MINUTE
     Route: 050
  5. REMIFENTANIL [Suspect]
     Active Substance: REMIFENTANIL
     Indication: PRODUCT USED FOR UNKNOWN INDICATION
     Dosage: 0.15 MICROGRAM/KILOGRAM, 1 MINUTE
     Route: 050
  6. PROPOFOL. [Concomitant]
     Active Substance: PROPOFOL
     Indication: ANAESTHESIA
     Dosage: 1.5 MILLIGRAM/KILOGRAM
     Route: 041
  7. EPINEPHRINE. [Interacting]
     Active Substance: EPINEPHRINE
     Indication: BLOOD PRESSURE DECREASED
     Dosage: 5 MICROGRAM, THREE BOLUSES  WERE GIVEN
     Route: 040
  8. ATROPINE. [Suspect]
     Active Substance: ATROPINE
     Indication: HEART RATE DECREASED
     Dosage: 0.8 MILLIGRAM, SINGLE,1 TOTAL
     Route: 065
  9. OXYGEN. [Concomitant]
     Active Substance: OXYGEN
     Indication: PRODUCT USED FOR UNKNOWN INDICATION
     Dosage: UNK
     Route: 065
  10. FENTANYL. [Concomitant]
     Active Substance: FENTANYL
     Indication: ANAESTHESIA
     Dosage: 0.2 MICROGRAM/KILOGRAM
     Route: 042
  11. DIPOTASSIUM CLORAZEPATE [Concomitant]
     Active Substance: CLORAZEPATE DIPOTASSIUM
     Indication: PREMEDICATION
     Dosage: 20 MILLIGRAM
     Route: 048
  12. NITROUS OXIDE. [Concomitant]
     Active Substance: NITROUS OXIDE
     Indication: PRODUCT USED FOR UNKNOWN INDICATION
     Dosage: UNK
     Route: 065
  13. CLORAZEPIC ACID [Concomitant]
     Active Substance: CLORAZEPIC ACID
     Indication: PREMEDICATION
     Dosage: 20 MILLIGRAM
     Route: 048
  14. EPINEPHRINE. [Interacting]
     Active Substance: EPINEPHRINE
     Indication: HEART RATE DECREASED
     Dosage: UNK
     Route: 065
  15. ROCURONIUM [Interacting]
     Active Substance: ROCURONIUM BROMIDE
     Indication: NEUROMUSCULAR BLOCKING THERAPY
     Dosage: 50 MILLIGRAM, SINGLE, 1 TOTAL, 5 SECONDS
     Route: 042

REACTIONS (5)
  - Drug interaction [Recovered/Resolved]
  - Neuromuscular block prolonged [Recovered/Resolved]
  - Bradycardia [Recovered/Resolved]
  - Drug ineffective [Unknown]
  - Hypotension [Recovering/Resolving]
